FAERS Safety Report 5089008-3 (Version None)
Quarter: 2006Q3

REPORT INFORMATION
  Report Type: 
  Country: None (occurrence: None)
  Receive Date: 20060822
  Receipt Date: 20060805
  Transmission Date: 20061208
  Serious: Yes (Hospitalization, Other)
  Sender: FDA-Public Use
  Company Number: 163-21880-06080204

PATIENT
  Age: 81 Year
  Sex: Female
  Weight: 49.4 kg

DRUGS (2)
  1. REVLIMID [Suspect]
     Indication: MYELOFIBROSIS
     Dosage: 10 MG, DAILY ON DAYS 1-28, ON CYCLES 1-6, ORAL
     Route: 048
     Dates: start: 20060601
  2. PREDNISONE TAB [Suspect]
     Indication: MYELOFIBROSIS
     Dosage: SEE  IMAGE, ORAL
     Route: 048
     Dates: start: 20060601, end: 20060712

REACTIONS (8)
  - ARRHYTHMIA [None]
  - ATRIAL FIBRILLATION [None]
  - CHEST PAIN [None]
  - GOUT [None]
  - HYPERHIDROSIS [None]
  - HYPERURICAEMIA [None]
  - SICK SINUS SYNDROME [None]
  - SYNCOPE [None]
